FAERS Safety Report 6790994-1 (Version None)
Quarter: 2010Q2

REPORT INFORMATION
  Report Type: 
  Country: None (occurrence: None)
  Receive Date: 20100624
  Receipt Date: 20100617
  Transmission Date: 20101027
  Serious: Yes (Hospitalization)
  Sender: FDA-Public Use
  Company Number: GB-AMGEN-QUU419842

PATIENT
  Age: 52 Year
  Sex: Female

DRUGS (9)
  1. ENBREL [Suspect]
     Indication: RHEUMATOID ARTHRITIS
     Dosage: 50 MG (FREQUENCY UNSPECIFIED)
     Route: 058
     Dates: start: 20100312, end: 20100516
  2. FELODIPINE [Concomitant]
     Dosage: UNKNOWN
  3. FERROUS SULFATE TAB [Concomitant]
     Dosage: UNKNOWN
  4. OXYBUTYNIN CHLORIDE [Concomitant]
     Dosage: UNKNOWN
  5. LEVOTHYROXINE [Concomitant]
     Dosage: UNKNOWN
  6. METHOTREXATE [Concomitant]
     Dosage: UNKNOWN
  7. OMEPRAZOLE [Concomitant]
     Dosage: UNKNOWN
  8. ACETYLSALICYLIC ACID [Concomitant]
     Dosage: UNKNOWN
  9. FOLIC ACID [Concomitant]
     Dosage: UNKNOWN

REACTIONS (2)
  - ABDOMINAL RIGIDITY [None]
  - CHOLECYSTITIS ACUTE [None]
